FAERS Safety Report 6469743-2 (Version None)
Quarter: 2009Q4

REPORT INFORMATION
  Report Type: 
  Country: None (occurrence: None)
  Receive Date: 20091201
  Receipt Date: 20091119
  Transmission Date: 20100525
  Serious: Yes (Other)
  Sender: FDA-Public Use
  Company Number: 2009-4830

PATIENT
  Sex: Male

DRUGS (1)
  1. APO-GO AMPOULES (APO-GO) (APOMORPHINE HYDROCHLORIDE) (APOMORPHINE  HYD [Suspect]
     Indication: PARKINSON'S DISEASE

REACTIONS (2)
  - AGGRESSION [None]
  - PHYSICAL ABUSE [None]
